FAERS Safety Report 9244726 (Version 1)
Quarter: 2013Q1

REPORT INFORMATION
  Report Type: Spontaneous
  Country: US (occurrence: None)
  Receive Date: 20121130
  Receipt Date: 20121130
  Transmission Date: 20140127
  Serious: Yes (Other)
  Sender: FDA-Public Use
  Company Number: PHEH2012US014369

PATIENT
  Age: 35 Year
  Sex: Male

DRUGS (4)
  1. LAMISIL [Suspect]
     Indication: TINEA PEDIS
     Route: 048
     Dates: start: 20120518
  2. LAMISIL [Suspect]
     Indication: ONYCHOMYCOSIS
     Route: 048
     Dates: start: 20120518
  3. TERBINAFINE (TERBINAFINE) [Concomitant]
  4. MULTIVITAMIN (VITAMINS NOS) [Concomitant]

REACTIONS (4)
  - Ageusia [None]
  - Vertigo [None]
  - Hypophagia [None]
  - Weight decreased [None]
